FAERS Safety Report 10128422 (Version 2)
Quarter: 2014Q3

REPORT INFORMATION
  Report Type: Spontaneous
  Country: FR (occurrence: FR)
  Receive Date: 20140428
  Receipt Date: 20140702
  Transmission Date: 20150326
  Serious: Yes (Hospitalization)
  Sender: FDA-Public Use
  Company Number: FR-BRISTOL-MYERS SQUIBB COMPANY-20654042

PATIENT
  Age: 89 Year
  Sex: Male
  Weight: 70 kg

DRUGS (8)
  1. TAHOR [Concomitant]
     Active Substance: ATORVASTATIN CALCIUM
     Indication: HYPERCHOLESTEROLAEMIA
     Dosage: STR: 40.?1DF = 1TAB
     Dates: start: 2003
  2. CARDENSIEL [Concomitant]
     Active Substance: BISOPROLOL FUMARATE
     Dosage: STR: 2.5.?1DF = 1TAB
     Dates: start: 201403
  3. COVERSYL [Concomitant]
     Active Substance: PERINDOPRIL
     Dosage: STR: 2.5.?1DF = 1TAB
     Dates: start: 201403
  4. CORDARONE [Concomitant]
     Active Substance: AMIODARONE HYDROCHLORIDE
     Indication: ATRIAL FIBRILLATION
     Dosage: 1DF = 1TAB
     Dates: start: 2010
  5. LASILIX [Concomitant]
     Active Substance: FUROSEMIDE
     Dosage: STR: 20.?1DF = 1TAB
     Dates: start: 201403
  6. LEVOTHYROX [Concomitant]
     Active Substance: LEVOTHYROXINE
     Indication: HYPOTHYROIDISM
     Dosage: STR: 125.?1DF = 1TAB
     Dates: start: 2003
  7. ELIQUIS [Suspect]
     Active Substance: APIXABAN
     Indication: ATRIAL FIBRILLATION
  8. ELIQUIS [Suspect]
     Active Substance: APIXABAN
     Indication: CARDIAC FAILURE

REACTIONS (2)
  - Fall [Unknown]
  - Hip fracture [Recovered/Resolved]

NARRATIVE: CASE EVENT DATE: 20140303
